FAERS Safety Report 7570677-0 (Version None)
Quarter: 2011Q2

REPORT INFORMATION
  Report Type: 
  Country: None (occurrence: None)
  Receive Date: 20110624
  Receipt Date: 20110504
  Transmission Date: 20111010
  Serious: No
  Sender: FDA-Public Use
  Company Number: US-ALLERGAN-1106145US

PATIENT
  Age: 57 Year
  Sex: Female

DRUGS (4)
  1. MASCARA [Concomitant]
  2. GENTEAL                            /00445101/ [Concomitant]
  3. LATISSE [Suspect]
     Indication: GROWTH OF EYELASHES
     Dosage: 1 GTT, QHS
     Route: 061
     Dates: start: 20110424, end: 20110429
  4. EYELINER [Concomitant]

REACTIONS (3)
  - BURNING SENSATION [None]
  - ERYTHEMA OF EYELID [None]
  - EYELIDS PRURITUS [None]
